FAERS Safety Report 4832854-9 (Version None)
Quarter: 2005Q4

REPORT INFORMATION
  Report Type: 
  Country: None (occurrence: None)
  Receive Date: 20051121
  Receipt Date: 20050803
  Transmission Date: 20060501
  Serious: Yes (Other)
  Sender: FDA-Public Use
  Company Number: US-MERCK-0508USA01367

PATIENT
  Age: 58 Year
  Sex: Male
  Weight: 111 kg

DRUGS (9)
  1. VIOXX [Suspect]
     Indication: OSTEOARTHRITIS
     Route: 048
     Dates: start: 20001229
  2. VIOXX [Suspect]
     Route: 048
     Dates: end: 20040930
  3. TOPROL-XL [Concomitant]
     Indication: HYPERTENSION
     Route: 065
  4. PLAVIX [Concomitant]
     Indication: ANTICOAGULANT THERAPY
     Route: 065
  5. CARDURA [Concomitant]
     Indication: PROSTATE EXAMINATION ABNORMAL
     Route: 065
  6. ASPIRIN [Concomitant]
     Route: 065
  7. ZOCOR [Concomitant]
     Indication: BLOOD CHOLESTEROL INCREASED
     Route: 048
  8. GLUCOPHAGE [Concomitant]
     Indication: DIABETES MELLITUS
     Route: 065
  9. NEURONTIN [Concomitant]
     Indication: RESTLESS LEGS SYNDROME
     Route: 065

REACTIONS (3)
  - CARDIAC DISORDER [None]
  - CAROTID ARTERY STENOSIS [None]
  - CEREBROVASCULAR ACCIDENT [None]
